FAERS Safety Report 17728839 (Version 1)
Quarter: 2020Q2

REPORT INFORMATION
  Report Type: Spontaneous
  Country: US (occurrence: US)
  Receive Date: 20200430
  Receipt Date: 20200430
  Transmission Date: 20200714
  Serious: No
  Sender: FDA-Public Use
  Company Number: US-ABBVIE-20K-163-3287822-00

PATIENT
  Sex: Female

DRUGS (2)
  1. CREON [Suspect]
     Active Substance: PANCRELIPASE AMYLASE\PANCRELIPASE LIPASE\PANCRELIPASE PROTEASE
     Indication: PANCREATITIS
     Dosage: 1 CAPSULE WITH EACH MEAL
     Route: 048
     Dates: start: 202001, end: 202001
  2. LORATADINE. [Concomitant]
     Active Substance: LORATADINE
     Indication: CONNECTIVE TISSUE DISORDER

REACTIONS (3)
  - Neurogenic bowel [Recovered/Resolved]
  - Back pain [Recovered/Resolved]
  - Intentional product misuse [Recovered/Resolved]

NARRATIVE: CASE EVENT DATE: 202001
